FAERS Safety Report 10962530 (Version 1)
Quarter: 2015Q1

REPORT INFORMATION
  Report Type: Spontaneous
  Country: US (occurrence: US)
  Receive Date: 20150327
  Receipt Date: 20150327
  Transmission Date: 20150721
  Serious: Yes (Disabling, Other)
  Sender: FDA-Public Use
  Company Number: US-BAYER-2015-051140

PATIENT
  Age: 71 Year
  Sex: Female

DRUGS (71)
  1. LIPITOR [Suspect]
     Active Substance: ATORVASTATIN CALCIUM
     Indication: BLOOD CHOLESTEROL INCREASED
     Dosage: UNK
     Route: 048
     Dates: end: 2003
  2. METHYLPREDNISOLON [Concomitant]
     Active Substance: METHYLPREDNISOLONE
     Dosage: AS DIRECTED
     Route: 048
  3. TRICOR [Concomitant]
     Active Substance: FENOFIBRATE
     Dosage: 1 DF, QD
     Route: 048
  4. ALLOPURINOL. [Concomitant]
     Active Substance: ALLOPURINOL
     Dosage: 1 DF, HS
     Route: 048
  5. WELCHOL [Concomitant]
     Active Substance: COLESEVELAM HYDROCHLORIDE
     Dosage: 2 DF, BID
     Route: 048
  6. OXYCODONE [Concomitant]
     Active Substance: OXYCODONE
     Dosage: 1 DF, PRN (EVERY 4-6 HOURS)
     Route: 048
  7. LASIX [Concomitant]
     Active Substance: FUROSEMIDE
     Dosage: UNK, EVERY MORNING
     Route: 048
  8. NIASPAN [Concomitant]
     Active Substance: NIACIN
     Dosage: UNK, HS
     Route: 048
  9. MIRAPEX [Concomitant]
     Active Substance: PRAMIPEXOLE DIHYDROCHLORIDE
     Dosage: 1 DF, EVERY EVENING
  10. PROPOXYPHENE. [Concomitant]
     Active Substance: PROPOXYPHENE
     Indication: BACK PAIN
     Dosage: 1 DF, 6ID
     Route: 048
  11. REQUIP [Concomitant]
     Active Substance: ROPINIROLE HYDROCHLORIDE
     Dosage: 2 DF, HS
     Route: 048
  12. TEKTURNA [Concomitant]
     Active Substance: ALISKIREN HEMIFUMARATE
     Dosage: 1 DF, EVERY MORNING
     Route: 048
  13. CEFDINIR. [Concomitant]
     Active Substance: CEFDINIR
     Dosage: 1 DF, BID
     Route: 048
  14. OXYCODONE [Concomitant]
     Active Substance: OXYCODONE
     Dosage: 1-2 DF, PRN (6 HOURS)
     Route: 048
  15. HYDROCODONE [Concomitant]
     Active Substance: HYDROCODONE
     Dosage: 1 DF, PRN (12 HOURS)
  16. COLESTID [Concomitant]
     Active Substance: COLESTIPOL HYDROCHLORIDE
     Dosage: 2 DF, TID
     Route: 048
  17. SINEMET [Concomitant]
     Active Substance: CARBIDOPA\LEVODOPA
     Dosage: UNK, HS
     Route: 048
  18. TRAZODONE HYDROCHLORIDE. [Concomitant]
     Active Substance: TRAZODONE HYDROCHLORIDE
     Dosage: UNK, EVERY EVENING
     Route: 048
  19. PROMETHAZINE [Concomitant]
     Active Substance: PROMETHAZINE\PROMETHAZINE HYDROCHLORIDE
     Dosage: 1 DF, 6ID
     Route: 048
  20. VITAMIN D [Suspect]
     Active Substance: CHOLECALCIFEROL
     Dosage: UNK, EVERY WEEK
  21. BAYER GENUINE ASPIRIN [Suspect]
     Active Substance: ASPIRIN
  22. SKELAXIN [Concomitant]
     Active Substance: METAXALONE
     Dosage: 1 DF, HS
     Route: 048
  23. MIRAPEX [Concomitant]
     Active Substance: PRAMIPEXOLE DIHYDROCHLORIDE
     Dosage: 1 DF, QD (EVENING)
     Route: 048
  24. COLESTIPOL [Concomitant]
     Active Substance: COLESTIPOL
     Dosage: 2 DF, TID
     Route: 048
  25. CLINDAMYCIN [Concomitant]
     Active Substance: CLINDAMYCIN\CLINDAMYCIN PHOSPHATE
     Dosage: 1 DF, 6ID
     Route: 048
  26. AMLODIPINE BESYLATE. [Concomitant]
     Active Substance: AMLODIPINE BESYLATE
     Dosage: 1 DF, TID
     Route: 048
  27. LOVENOX [Concomitant]
     Active Substance: ENOXAPARIN SODIUM
     Dosage: 1 SYRINGE EVERY 24 HOURS
     Route: 058
  28. ZETIA [Concomitant]
     Active Substance: EZETIMIBE
     Dosage: 1 DF, UNK
     Route: 048
  29. ZYLOPRIM [Concomitant]
     Active Substance: ALLOPURINOL
     Route: 048
  30. OCEAN NASAL [Concomitant]
  31. SKELAXIN [Concomitant]
     Active Substance: METAXALONE
     Dosage: 1 DF, TID
     Route: 048
  32. BACLOFEN. [Concomitant]
     Active Substance: BACLOFEN
     Dosage: 1 DF, HS
     Route: 048
  33. ZEGERID [Concomitant]
     Active Substance: OMEPRAZOLE\SODIUM BICARBONATE
     Dosage: 1 DF, EVERY MORNING
     Route: 048
  34. PRAVASTATIN [Concomitant]
     Active Substance: PRAVASTATIN\PRAVASTATIN SODIUM
     Dosage: 1 DF, HS
     Route: 048
  35. RELAFEN [Concomitant]
     Active Substance: NABUMETONE
     Dosage: UNK UNK, BID
     Route: 048
  36. ALLEGRA [Concomitant]
     Active Substance: FEXOFENADINE HYDROCHLORIDE
     Dosage: UNK, EVERY MORNING
     Route: 048
  37. LORTAB [Concomitant]
     Active Substance: ACETAMINOPHEN\HYDROCODONE BITARTRATE
     Dosage: UNK UNK, BID
     Route: 048
  38. VITAMIN B12 [Concomitant]
     Active Substance: CYANOCOBALAMIN
  39. ROPINIROLE. [Concomitant]
     Active Substance: ROPINIROLE
     Dosage: 1 DF, HS
     Route: 048
  40. AMLODIPINE BESYLATE. [Concomitant]
     Active Substance: AMLODIPINE BESYLATE
     Dosage: 1 DF, BID
     Route: 048
  41. TIZANIDINE (TIZANIDINE) [Concomitant]
     Active Substance: TIZANIDINE
     Indication: MUSCLE SPASMS
     Dosage: 1 DF, TID
     Route: 048
  42. TRAMADOL [Concomitant]
     Active Substance: TRAMADOL
     Dosage: 1 DF, 6 HOURS, PRN
     Route: 048
  43. HYDROCODONE [Concomitant]
     Active Substance: HYDROCODONE
     Dosage: 1 DF, 6ID
     Route: 048
  44. GABAPENTIN. [Concomitant]
     Active Substance: GABAPENTIN
     Dosage: 1 DF, TID
     Route: 048
  45. NORVASC [Concomitant]
     Active Substance: AMLODIPINE BESYLATE
     Dosage: 1 DF, BID
     Route: 048
  46. ATORVASTATIN [Concomitant]
     Active Substance: ATORVASTATIN
     Dosage: UNK
     Route: 048
     Dates: end: 2005
  47. PRAVACHOL [Concomitant]
     Active Substance: PRAVASTATIN SODIUM
     Dosage: UNK UNK, HS
  48. ROPINIROLE HYDROCHLORIDE. [Concomitant]
     Active Substance: ROPINIROLE HYDROCHLORIDE
     Dosage: UNK UNK, HS
     Route: 048
  49. CLONAZEPAM. [Concomitant]
     Active Substance: CLONAZEPAM
     Dosage: 1 DF, HS
     Route: 048
  50. LOVAZA [Concomitant]
     Active Substance: OMEGA-3-ACID ETHYL ESTERS
     Dosage: 2 DF, BID
     Route: 048
  51. NABUMETONE. [Concomitant]
     Active Substance: NABUMETONE
     Dosage: 2 DF, QD
     Route: 048
  52. CLINDAMYCIN [Concomitant]
     Active Substance: CLINDAMYCIN\CLINDAMYCIN PHOSPHATE
     Dosage: 1 DF, TID
     Route: 048
  53. VYTORIN [Concomitant]
     Active Substance: EZETIMIBE\SIMVASTATIN
     Dosage: 1 DF, HS
     Route: 048
  54. FOLBIC [Concomitant]
     Active Substance: CYANOCOBALAMIN\FOLIC ACID\PYRIDOXINE
     Dosage: 1 DF, BID
     Route: 048
  55. CIPROFLOXACIN. [Concomitant]
     Active Substance: CIPROFLOXACIN
     Dosage: 1 DF, BID
     Route: 048
  56. ALPRAZOLAM. [Concomitant]
     Active Substance: ALPRAZOLAM
     Dosage: 2 DF, HS
  57. PRILOSEC [Concomitant]
     Active Substance: OMEPRAZOLE MAGNESIUM
     Dosage: UNK, EVERY MORNING
     Route: 048
  58. DARVOCET [Concomitant]
     Active Substance: ACETAMINOPHEN\PROPOXYPHENE HYDROCHLORIDE
     Dosage: UNK, 6ID
     Route: 048
  59. PROPOXYPHENE. [Concomitant]
     Active Substance: PROPOXYPHENE
     Indication: BACK PAIN
     Dosage: 1 DF, UNK
  60. PROPOXYPHENE. [Concomitant]
     Active Substance: PROPOXYPHENE
     Indication: BACK PAIN
     Dosage: 1 DF, PRN
  61. BENICAR HCT [Concomitant]
     Active Substance: HYDROCHLOROTHIAZIDE\OLMESARTAN MEDOXOMIL
     Indication: BLOOD PRESSURE
     Dosage: 1 DF, QD
     Route: 048
  62. BENICAR HCT [Concomitant]
     Active Substance: HYDROCHLOROTHIAZIDE\OLMESARTAN MEDOXOMIL
     Indication: BLOOD PRESSURE
     Dosage: 1 DF, BID
     Route: 048
  63. NABUMETONE. [Concomitant]
     Active Substance: NABUMETONE
     Dosage: 1 DF, BID
     Route: 048
  64. DETROL [Concomitant]
     Active Substance: TOLTERODINE TARTRATE
     Dosage: 1 DF, NIGHT AT BED TIME
     Route: 048
  65. IBUPROFEN. [Concomitant]
     Active Substance: IBUPROFEN
     Dosage: 1 DF, TID
     Route: 048
  66. CO-TRIMOXAZOLE [SULFAMETHOXAZOLE,TRIMETHOPRIM] [Concomitant]
     Dosage: 1 DF, BID
     Route: 048
  67. EFFEXOR [Concomitant]
     Active Substance: VENLAFAXINE HYDROCHLORIDE
     Dosage: 2 DF, QD
     Route: 048
  68. LIDODERM [Concomitant]
     Active Substance: LIDOCAINE
     Dosage: AS DIRECTED
  69. AZITHROMYCIN [Concomitant]
     Active Substance: AZITHROMYCIN ANHYDROUS
     Dosage: AS DIRECTED
     Route: 048
  70. ALPRAZOLAM. [Concomitant]
     Active Substance: ALPRAZOLAM
     Dosage: 1 DF, BID
     Route: 048
  71. OMEGA-3-ACID ETHYL ESTER [Concomitant]
     Active Substance: OMEGA-3-ACID ETHYL ESTERS
     Dosage: 3 DF, TID
     Route: 048

REACTIONS (20)
  - C-reactive protein increased [Unknown]
  - Contusion [Unknown]
  - Peripheral swelling [Unknown]
  - Spinal osteoarthritis [Unknown]
  - Dental caries [Unknown]
  - Cheilitis [Unknown]
  - Cerebrovascular accident [Unknown]
  - Dyspnoea exertional [Unknown]
  - Fall [Unknown]
  - Blood glucose increased [Unknown]
  - Neck pain [Unknown]
  - Abasia [None]
  - Bone loss [Unknown]
  - Tooth fracture [Unknown]
  - Muscular weakness [Unknown]
  - Peripheral swelling [None]
  - Facial pain [Unknown]
  - Blood homocysteine increased [Unknown]
  - Dizziness [Unknown]
  - Periorbital contusion [Unknown]

NARRATIVE: CASE EVENT DATE: 20090924
